FAERS Safety Report 15344573 (Version 2)
Quarter: 2019Q4

REPORT INFORMATION
  Report Type: Report from Study
  Country: US (occurrence: US)
  Receive Date: 20180903
  Receipt Date: 20191021
  Transmission Date: 20200122
  Serious: No
  Sender: FDA-Public Use
  Company Number: US-SA-2018SA245011

PATIENT
  Age: 36 Year
  Sex: Female

DRUGS (1)
  1. TERIFLUNOMIDE. [Suspect]
     Active Substance: TERIFLUNOMIDE
     Indication: MULTIPLE SCLEROSIS
     Dosage: 14 MG, QD
     Route: 048
     Dates: start: 20181001, end: 201901

REACTIONS (4)
  - Nausea [Recovered/Resolved]
  - Memory impairment [Not Recovered/Not Resolved]
  - Alopecia [Recovered/Resolved]
  - Condition aggravated [Not Recovered/Not Resolved]
